FAERS Safety Report 23053739 (Version 2)
Quarter: 2023Q4

REPORT INFORMATION
  Report Type: Report from Study
  Country: US (occurrence: US)
  Receive Date: 20231011
  Receipt Date: 20231124
  Transmission Date: 20240110
  Serious: Yes (Hospitalization)
  Sender: FDA-Public Use
  Company Number: US-INSMED, INC.-2023-03742-US

PATIENT
  Sex: Female

DRUGS (1)
  1. ARIKAYCE [Suspect]
     Active Substance: AMIKACIN
     Indication: Product used for unknown indication
     Dosage: 590 MILLIGRAM, QD
     Route: 055
     Dates: end: 2023

REACTIONS (2)
  - Hospitalisation [Unknown]
  - Therapy interrupted [Unknown]
